FAERS Safety Report 4993190-3 (Version None)
Quarter: 2006Q1

REPORT INFORMATION
  Report Type: 
  Country: None (occurrence: None)
  Receive Date: 20060313
  Receipt Date: 20060111
  Transmission Date: 20060701
  Serious: No
  Sender: FDA-Public Use
  Company Number: 2005-BP-19113BP

PATIENT
  Sex: Female

DRUGS (14)
  1. SPIRIVA [Suspect]
     Indication: ASTHMA
     Dosage: 18 MCG (18 MCG, 1 IN 1 D), IH
     Route: 055
     Dates: start: 20040701
  2. SPIRIVA [Suspect]
  3. NEXIUM [Concomitant]
  4. SYNTHROID [Concomitant]
  5. POTASSIUM (POTASSIUM) [Concomitant]
  6. DYAZIDE [Concomitant]
  7. MUCINEX (GUAIFENESIN) [Concomitant]
  8. SINGULAIR [Concomitant]
  9. VYTORIN (INEGY) [Concomitant]
  10. NEURONTIN [Concomitant]
  11. ATIVAN [Concomitant]
  12. FLONASE [Concomitant]
  13. ADVAIR (SERETIDE) [Concomitant]
  14. FLOVENT [Concomitant]

REACTIONS (2)
  - ASTHMA [None]
  - SOMNOLENCE [None]
